FAERS Safety Report 9751734 (Version 5)
Quarter: 2014Q2

REPORT INFORMATION
  Report Type: Report from Study
  Country: US (occurrence: US)
  Receive Date: 20131213
  Receipt Date: 20140529
  Transmission Date: 20141212
  Serious: Yes (Hospitalization)
  Sender: FDA-Public Use
  Company Number: US-BIOGENIDEC-2013BI118685

PATIENT
  Age: 60 Year
  Sex: Male

DRUGS (1)
  1. TYSABRI [Suspect]
     Indication: MULTIPLE SCLEROSIS
     Route: 042
     Dates: start: 20120608, end: 201310

REACTIONS (3)
  - General symptom [Not Recovered/Not Resolved]
  - Staphylococcal osteomyelitis [Not Recovered/Not Resolved]
  - Tremor [Not Recovered/Not Resolved]
